FAERS Safety Report 10601070 (Version 3)
Quarter: 2016Q3

REPORT INFORMATION
  Report Type: Spontaneous
  Country: US (occurrence: US)
  Receive Date: 20141124
  Receipt Date: 20160713
  Transmission Date: 20161109
  Serious: Yes (Hospitalization)
  Sender: FDA-Public Use
  Company Number: US-CIPLA LTD.-2014US02074

PATIENT

DRUGS (3)
  1. AMLODIPINE [Suspect]
     Active Substance: AMLODIPINE BESYLATE
     Dosage: 500 MG, UNK
     Route: 048
  2. HYDROCHLOROTHIAZIDE. [Suspect]
     Active Substance: HYDROCHLOROTHIAZIDE
     Dosage: 625 MG, UNK
     Route: 065
  3. LISINOPRIL. [Suspect]
     Active Substance: LISINOPRIL
     Dosage: 1 G, UNK
     Route: 048

REACTIONS (8)
  - Ejection fraction decreased [Recovered/Resolved]
  - Shock [Recovered/Resolved]
  - Acute kidney injury [Unknown]
  - Suicide attempt [Unknown]
  - Respiratory failure [Recovered/Resolved]
  - Sepsis [Unknown]
  - Mental status changes [Recovered/Resolved]
  - Intentional overdose [Unknown]
